FAERS Safety Report 25019945 (Version 3)
Quarter: 2025Q1

REPORT INFORMATION
  Report Type: Spontaneous
  Country: FR (occurrence: FR)
  Receive Date: 20250227
  Receipt Date: 20250328
  Transmission Date: 20250408
  Serious: Yes (Other)
  Sender: VERTEX
  Company Number: None

PATIENT
  Age: 26 Year
  Sex: Female
  Weight: 45 kg

DRUGS (12)
  1. ELEXACAFTOR\IVACAFTOR\TEZACAFTOR [Suspect]
     Active Substance: ELEXACAFTOR\IVACAFTOR\TEZACAFTOR
     Indication: Cystic fibrosis
     Dosage: 75 MG IVA /50 MG TEZA/100 MG ELEXA, 2 TABS PER DAY
     Route: 048
     Dates: start: 20240415, end: 20250109
  2. KALYDECO [Suspect]
     Active Substance: IVACAFTOR
     Indication: Cystic fibrosis
     Dosage: 150 MG PER DAY
     Route: 048
     Dates: start: 20240415, end: 20250109
  3. IVACAFTOR\LUMACAFTOR [Suspect]
     Active Substance: IVACAFTOR\LUMACAFTOR
     Indication: Cystic fibrosis
     Route: 048
     Dates: start: 20240415
  4. PANCRELIPASE [Suspect]
     Active Substance: PANCRELIPASE
     Indication: Cystic fibrosis
     Dosage: 12 DOSAGE FORM; 25000 U
     Route: 064
     Dates: start: 20240415, end: 20250109
  5. DESLORATADINE [Suspect]
     Active Substance: DESLORATADINE
     Indication: Product used for unknown indication
     Dosage: 1 DOSAGE FORM, QD
     Route: 064
     Dates: start: 20240415, end: 20250109
  6. TRIAMCINOLONE [Suspect]
     Active Substance: TRIAMCINOLONE
     Indication: Cystic fibrosis
     Dosage: 2 DOSAGE FORM, QD
     Route: 064
     Dates: start: 20240415, end: 20250109
  7. BUDESONIDE [Suspect]
     Active Substance: BUDESONIDE
     Indication: Cystic fibrosis
     Dates: start: 20240415, end: 20250109
  8. FORMOTEROL FUMARATE DIHYDRATE [Suspect]
     Active Substance: FORMOTEROL FUMARATE DIHYDRATE
     Indication: Cystic fibrosis
     Route: 064
     Dates: start: 20240415, end: 20250109
  9. CHOLECALCIFEROL [Suspect]
     Active Substance: CHOLECALCIFEROL
     Indication: Vitamin supplementation
     Route: 064
     Dates: start: 20240415, end: 20250109
  10. ESOMEPRAZOLE [Suspect]
     Active Substance: ESOMEPRAZOLE
     Indication: Cystic fibrosis
     Dosage: 20 MILLIGRAM, QD, TABLET
     Route: 064
     Dates: start: 20240415, end: 20250109
  11. PANCREATIN [Suspect]
     Active Substance: PANCRELIPASE
     Indication: Cystic fibrosis
     Dosage: 1 DOSAGE FORM, QD
     Route: 065
     Dates: start: 20240415
  12. GLYCOPYRRONIUM [Suspect]
     Active Substance: GLYCOPYRRONIUM
     Indication: Product used for unknown indication
     Route: 064
     Dates: start: 20240415, end: 20250109

REACTIONS (2)
  - Pericardial effusion [Recovered/Resolved]
  - Exposure during pregnancy [Unknown]

NARRATIVE: CASE EVENT DATE: 20240415
